FAERS Safety Report 21447648 (Version 1)
Quarter: 2022Q4

REPORT INFORMATION
  Report Type: Spontaneous
  Country: JP (occurrence: JP)
  Receive Date: 20221012
  Receipt Date: 20221012
  Transmission Date: 20230113
  Serious: Yes (Other)
  Sender: FDA-Public Use
  Company Number: JP-PFIZER INC-202201210166

PATIENT
  Age: 74 Year
  Sex: Male

DRUGS (1)
  1. ZYVOX [Suspect]
     Active Substance: LINEZOLID
     Dosage: UNK
     Dates: start: 20221005

REACTIONS (3)
  - Primary cerebellar degeneration [Unknown]
  - Condition aggravated [Unknown]
  - Tremor [Unknown]

NARRATIVE: CASE EVENT DATE: 20221001
